FAERS Safety Report 9925806 (Version 5)
Quarter: 2014Q2

REPORT INFORMATION
  Report Type: Spontaneous
  Country: US (occurrence: US)
  Receive Date: 20140226
  Receipt Date: 20140612
  Transmission Date: 20141212
  Serious: Yes (Hospitalization)
  Sender: FDA-Public Use
  Company Number: US-BAXTER-2014BAX008075

PATIENT
  Sex: Female

DRUGS (2)
  1. DIANEAL LOW CALCIUM [Suspect]
     Indication: RENAL FAILURE CHRONIC
     Route: 033
     Dates: start: 2012
  2. DIANEAL LOW CALCIUM [Suspect]
     Indication: FLUID OVERLOAD
     Route: 033
     Dates: start: 201402

REACTIONS (7)
  - Pneumonia [Recovered/Resolved]
  - Fall [Recovered/Resolved with Sequelae]
  - Contusion [Recovering/Resolving]
  - Swelling [Recovering/Resolving]
  - Deep vein thrombosis [Recovered/Resolved]
  - Fluid overload [Recovering/Resolving]
  - Fluid retention [Unknown]
